FAERS Safety Report 5803827-4 (Version None)
Quarter: 2008Q3

REPORT INFORMATION
  Report Type: 
  Country: None (occurrence: None)
  Receive Date: 20080708
  Receipt Date: 20080708
  Transmission Date: 20090109
  Serious: No
  Sender: FDA-Public Use
  Company Number: MY-BOEHRINGER INGELHEIM GMBH, GERMANY-2008-BP-08210SG

PATIENT

DRUGS (1)
  1. SPIRIVA [Suspect]

REACTIONS (3)
  - DRY MOUTH [None]
  - DYSGEUSIA [None]
  - HYPOAESTHESIA ORAL [None]
